FAERS Safety Report 9975549 (Version 2)
Quarter: 2014Q2

REPORT INFORMATION
  Report Type: Report from Study
  Country: AU (occurrence: AU)
  Receive Date: 20140306
  Receipt Date: 20140421
  Transmission Date: 20141212
  Serious: Yes (Hospitalization, Other)
  Sender: FDA-Public Use
  Company Number: PHHY2014AU027748

PATIENT
  Age: 48 Year
  Sex: Male

DRUGS (2)
  1. CLOZARIL [Suspect]
     Indication: SCHIZOPHRENIA
     Dosage: 300 MG, UNK
     Dates: start: 20140207, end: 20140304
  2. AMPHETAMINE [Concomitant]
     Dosage: UNK
     Route: 042

REACTIONS (11)
  - Feeling abnormal [Unknown]
  - Irritability [Unknown]
  - Mental disorder [Unknown]
  - Delusional disorder, unspecified type [Unknown]
  - Hypertension [Unknown]
  - Myocarditis [Unknown]
  - Chills [Unknown]
  - Pyrexia [Unknown]
  - Tachycardia [Unknown]
  - Troponin increased [Unknown]
  - Heart rate increased [Unknown]
